FAERS Safety Report 11722787 (Version 1)
Quarter: 2015Q4

REPORT INFORMATION
  Report Type: Spontaneous
  Country: US (occurrence: None)
  Receive Date: 20151110
  Receipt Date: 20151110
  Transmission Date: 20160304
  Serious: Yes (Other)
  Sender: FDA-Public Use
  Company Number: None

PATIENT
  Age: 34 Year
  Sex: Female
  Weight: 68.95 kg

DRUGS (8)
  1. ENTYVIO [Suspect]
     Active Substance: VEDOLIZUMAB
     Indication: CROHN^S DISEASE
     Route: 042
     Dates: start: 20151106, end: 20151106
  2. GABAPENTIN. [Concomitant]
     Active Substance: GABAPENTIN
  3. BACLOFIN [Concomitant]
  4. ROBAXIN [Concomitant]
     Active Substance: METHOCARBAMOL
  5. XANAX [Concomitant]
     Active Substance: ALPRAZOLAM
  6. ZOFRAN [Concomitant]
     Active Substance: ONDANSETRON HYDROCHLORIDE
  7. TYLENOL [Concomitant]
     Active Substance: ACETAMINOPHEN
  8. ATIVAN [Concomitant]
     Active Substance: LORAZEPAM

REACTIONS (8)
  - Muscle spasms [None]
  - Myalgia [None]
  - Muscular weakness [None]
  - Influenza like illness [None]
  - Loss of control of legs [None]
  - Abasia [None]
  - Movement disorder [None]
  - Tremor [None]

NARRATIVE: CASE EVENT DATE: 20151108
